FAERS Safety Report 11031365 (Version 1)
Quarter: 2015Q2

REPORT INFORMATION
  Report Type: Spontaneous
  Country: US (occurrence: US)
  Receive Date: 20150415
  Receipt Date: 20150415
  Transmission Date: 20150821
  Serious: No
  Sender: FDA-Public Use
  Company Number: US-PFIZER INC-2015123918

PATIENT
  Age: 61 Year
  Sex: Male
  Weight: 113 kg

DRUGS (2)
  1. CAVERJECT [Suspect]
     Active Substance: ALPROSTADIL
     Indication: ERECTILE DYSFUNCTION
     Dosage: 20 ?G, WEEKLY
     Route: 017
     Dates: end: 201503
  2. CAVERJECT [Suspect]
     Active Substance: ALPROSTADIL
     Dosage: 40 ?G, WEEKLY
     Route: 017
     Dates: start: 20150323

REACTIONS (1)
  - Drug ineffective [Recovered/Resolved]
